FAERS Safety Report 18654469 (Version 1)
Quarter: 2020Q4

REPORT INFORMATION
  Report Type: Spontaneous
  Country: US (occurrence: US)
  Receive Date: 20201223
  Receipt Date: 20201223
  Transmission Date: 20210114
  Serious: No
  Sender: FDA-Public Use
  Company Number: US-ELI_LILLY_AND_COMPANY-US202011011408

PATIENT
  Age: 45 Year
  Sex: Female

DRUGS (1)
  1. BAMLANIVIMAB. [Suspect]
     Active Substance: BAMLANIVIMAB
     Indication: COVID-19
     Dosage: UNK UNK, SINGLE
     Dates: start: 20201120, end: 20201120

REACTIONS (4)
  - Headache [Unknown]
  - Heart rate decreased [Unknown]
  - Blood pressure increased [Recovered/Resolved]
  - Dizziness [Unknown]
